FAERS Safety Report 5390440-9 (Version None)
Quarter: 2007Q3

REPORT INFORMATION
  Report Type: 
  Country: None (occurrence: None)
  Receive Date: 20070718
  Receipt Date: 20061106
  Transmission Date: 20080115
  Serious: Yes (Hospitalization)
  Sender: FDA-Public Use
  Company Number: US-KINGPHARMUSA00001-K200601407

PATIENT

DRUGS (2)
  1. LEVOXYL [Suspect]
     Indication: HYPOTHYROIDISM
     Dosage: 200 MCG, UNK
     Route: 048
     Dates: end: 20061025
  2. UNSPECIFIED STUDY MEDICATION [Concomitant]

REACTIONS (1)
  - HYPERTHYROIDISM [None]
